FAERS Safety Report 9538830 (Version 1)
Quarter: 2013Q3

REPORT INFORMATION
  Report Type: Report from Study
  Country: US (occurrence: US)
  Receive Date: 20130920
  Receipt Date: 20130920
  Transmission Date: 20140515
  Serious: Yes (Hospitalization)
  Sender: FDA-Public Use
  Company Number: PHEH2013US019749

PATIENT
  Sex: Female

DRUGS (1)
  1. GLEEVEC [Suspect]
     Indication: BENIGN GASTROINTESTINAL NEOPLASM
     Dosage: 400 MG, QD
     Route: 048

REACTIONS (3)
  - Tumour rupture [Unknown]
  - Asthenia [Unknown]
  - Decreased appetite [Unknown]
